FAERS Safety Report 7359480-4 (Version None)
Quarter: 2011Q1

REPORT INFORMATION
  Report Type: 
  Country: None (occurrence: None)
  Receive Date: 20110317
  Receipt Date: 20090823
  Transmission Date: 20110831
  Serious: No
  Sender: FDA-Public Use
  Company Number: US-PFIZER INC-2009237908

PATIENT
  Sex: Female

DRUGS (4)
  1. ALISKIREN FUMARATE [Suspect]
     Dosage: 150 UNK, UNK
  2. BUMEX [Suspect]
     Dosage: 2 MG, UNK
  3. POTASSIUM CHLORIDE [Suspect]
  4. NORVASC [Suspect]

REACTIONS (1)
  - DRUG INEFFECTIVE [None]
